FAERS Safety Report 16947988 (Version 2)
Quarter: 2019Q4

REPORT INFORMATION
  Report Type: Spontaneous
  Country: CA (occurrence: CA)
  Receive Date: 20191022
  Receipt Date: 20191030
  Transmission Date: 20200122
  Serious: Yes (Congenital Anomaly)
  Sender: FDA-Public Use
  Company Number: CA-TEVA-2019-CA-1125446

PATIENT

DRUGS (5)
  1. RITONAVIR. [Suspect]
     Active Substance: RITONAVIR
     Dosage: RITONAVIR-BOOSTED ATAZANAVIR
     Route: 064
  2. ATAZANAVIR. [Suspect]
     Active Substance: ATAZANAVIR
     Dosage: RITONAVIR-BOOSTED ATAZANAVIR
     Route: 064
  3. ABACAVIR. [Suspect]
     Active Substance: ABACAVIR
     Route: 064
  4. LAMIVUDINE. [Suspect]
     Active Substance: LAMIVUDINE
     Route: 064
  5. ZIDOVUDINE. [Suspect]
     Active Substance: ZIDOVUDINE
     Route: 064

REACTIONS (2)
  - Neural tube defect [Unknown]
  - Foetal exposure during pregnancy [Unknown]
